FAERS Safety Report 20224647 (Version 3)
Quarter: 2022Q1

REPORT INFORMATION
  Report Type: Report from Study
  Country: AU (occurrence: AU)
  Receive Date: 20211223
  Receipt Date: 20220111
  Transmission Date: 20220423
  Serious: Yes (Death, Hospitalization, Other)
  Sender: FDA-Public Use
  Company Number: AU-BRISTOL-MYERS SQUIBB COMPANY-BMS-2021-138234

PATIENT
  Age: 74 Year
  Sex: Male
  Weight: 85 kg

DRUGS (34)
  1. RELATLIMAB [Suspect]
     Active Substance: RELATLIMAB
     Indication: Non-small cell lung cancer
     Dosage: 100 MILLILITER
     Route: 042
     Dates: start: 20210527, end: 20211021
  2. NIVOLUMAB [Suspect]
     Active Substance: NIVOLUMAB
     Indication: Non-small cell lung cancer
     Dosage: 100 MILLILITER
     Route: 042
     Dates: start: 20210527, end: 20211021
  3. CARBOPLATIN [Suspect]
     Active Substance: CARBOPLATIN
     Indication: Non-small cell lung cancer
     Dosage: 580 MILLIGRAM
     Route: 065
     Dates: start: 20210527, end: 20210729
  4. PEMETREXED DISODIUM [Suspect]
     Active Substance: PEMETREXED DISODIUM
     Indication: Non-small cell lung cancer
     Dosage: 1000 MILLIGRAM
     Route: 065
     Dates: start: 20210527, end: 20210930
  5. DEXAMETHASONE [Concomitant]
     Active Substance: DEXAMETHASONE
     Indication: Product used for unknown indication
     Dosage: 8 MILLIGRAM, Q3WK
     Route: 042
     Dates: start: 20210527
  6. CELESTONE [Concomitant]
     Active Substance: BETAMETHASONE
     Indication: Product used for unknown indication
     Dosage: 1 DOSAGE FORM = 1 UNITS NOS, AS NEEDED
     Route: 061
     Dates: start: 20210601
  7. ZOLADEX [Concomitant]
     Active Substance: GOSERELIN ACETATE
     Indication: Product used for unknown indication
     Dosage: 10.8 MILLIGRAM, Q3MO
     Route: 058
     Dates: start: 2018
  8. FLUCONAZOLE [Concomitant]
     Active Substance: FLUCONAZOLE
     Indication: Product used for unknown indication
     Dosage: 100 MILLIGRAM, QD
     Route: 048
     Dates: start: 20210930
  9. DOXYCYCLINE [Concomitant]
     Active Substance: DOXYCYCLINE
     Indication: Product used for unknown indication
     Dosage: 10 MILLIGRAM, QD
     Route: 048
     Dates: start: 20211019
  10. ACETAMINOPHEN [Concomitant]
     Active Substance: ACETAMINOPHEN
     Indication: Back pain
     Dosage: 1000 MILLIGRAM; PRN
     Route: 048
     Dates: start: 20211022
  11. ACETAMINOPHEN [Concomitant]
     Active Substance: ACETAMINOPHEN
     Indication: Cancer pain
  12. TAPENTADOL [Concomitant]
     Active Substance: TAPENTADOL
     Indication: Back pain
     Dosage: 50 MILLIGRAM, QD
     Route: 048
     Dates: start: 202110
  13. TAPENTADOL [Concomitant]
     Active Substance: TAPENTADOL
     Indication: Cancer pain
  14. COVERAM [Concomitant]
     Active Substance: AMLODIPINE\PERINDOPRIL
     Indication: Product used for unknown indication
     Dosage: 1 DOSAGE FORM= 1 UNIT NOS, QID
     Route: 048
     Dates: start: 201407
  15. OXYCODONE [Concomitant]
     Active Substance: OXYCODONE
     Indication: Cancer pain
     Dosage: 20 MILLIGRAM, PRN
     Route: 048
     Dates: start: 20211202, end: 20211203
  16. OXYCODONE [Concomitant]
     Active Substance: OXYCODONE
     Dosage: 30 MILLIGRAM, AS NEEDED
     Route: 048
     Dates: start: 20211203, end: 20211206
  17. OXYCODONE [Concomitant]
     Active Substance: OXYCODONE
     Dosage: 80 MILLIGRAM, BID
     Route: 047
     Dates: start: 20211208
  18. GLICLAZIDE [Concomitant]
     Active Substance: GLICLAZIDE
     Indication: Product used for unknown indication
     Dosage: 60 MILLIGRAM, QD
     Route: 048
     Dates: start: 2000
  19. NEXIUM [Concomitant]
     Active Substance: ESOMEPRAZOLE MAGNESIUM
     Indication: Product used for unknown indication
     Dosage: 20 MILLIGRAM, QID
     Route: 048
     Dates: start: 2018
  20. SWISSE MEN^S ULTIVITE 50+ [Concomitant]
     Indication: Product used for unknown indication
     Dosage: 1 DOSAGE FORM = 1 UNIT NOS, QID
     Route: 048
     Dates: start: 2021
  21. FOLIC ACID [Concomitant]
     Active Substance: FOLIC ACID
     Indication: Product used for unknown indication
     Dosage: 0.5 MILLIGRAM, QD
     Route: 048
     Dates: start: 20210519
  22. CYANOCOBALAMIN [Concomitant]
     Active Substance: CYANOCOBALAMIN
     Indication: Product used for unknown indication
     Dosage: 1 DOSAGE FORM= 1000 UNITS NOS, AS NEEDED
     Route: 030
     Dates: start: 20210519
  23. AKYNZEO [Concomitant]
     Active Substance: NETUPITANT\PALONOSETRON HYDROCHLORIDE
     Indication: Product used for unknown indication
     Dosage: 1 DOSAGE FORM = 1 UNIT NOS, Q3WK, Q3S
     Route: 048
     Dates: start: 20210527
  24. INFLUENZA VIRUS VACCINE [Concomitant]
     Active Substance: INFLUENZA VIRUS VACCINE
     Indication: Prophylaxis
     Dosage: UNK
     Route: 030
     Dates: start: 20210610
  25. DOCUSATE SODIUM\SENNOSIDES A AND B [Concomitant]
     Active Substance: DOCUSATE SODIUM\SENNOSIDES A AND B
     Indication: Constipation
     Dosage: 2 UNIT, AS NEEDED
     Route: 048
     Dates: start: 20211203, end: 20211204
  26. AGAROL CAPSULAS [Concomitant]
     Indication: Constipation
     Dosage: 1 DOSAGE FORM = 2 UNITS NOS, AS NEEDED
     Route: 048
     Dates: start: 20211203, end: 20211203
  27. NALOXONE HYDROCHLORIDE\OXYCODONE HYDROCHLORIDE [Concomitant]
     Active Substance: NALOXONE HYDROCHLORIDE\OXYCODONE HYDROCHLORIDE
     Indication: Cancer pain
     Dosage: 1 UNIT, BID
     Route: 048
     Dates: start: 20211202, end: 20211208
  28. DEXAMETHASONE [Concomitant]
     Active Substance: DEXAMETHASONE
     Indication: Cancer pain
     Dosage: 4 MILLIGRAM, AS NEEDED
     Route: 048
     Dates: start: 20211203
  29. PREGABALIN [Concomitant]
     Active Substance: PREGABALIN
     Indication: Cancer pain
     Dosage: 30 MILLIGRAM, ONCE
     Route: 048
     Dates: start: 20211206, end: 20211206
  30. MORPHINE [Concomitant]
     Active Substance: MORPHINE
     Indication: Cancer pain
     Dosage: 5 MILLIGRAM, AS NEEDED
     Route: 058
     Dates: start: 20211202, end: 20211202
  31. BISACODYL [Concomitant]
     Active Substance: BISACODYL
     Indication: Constipation
     Dosage: 1 DOSAGE FORM= 1 UNITS NOS, ONCE
     Route: 054
     Dates: start: 20211209, end: 20211209
  32. GLYCERIN [Concomitant]
     Active Substance: GLYCERIN
     Indication: Constipation
     Dosage: 1 DOSAGE FORM= 1 UNITS NOS, AS NEEDED
     Route: 054
     Dates: start: 20211209, end: 20211209
  33. POLYETHYLENE GLYCOLS [Concomitant]
     Active Substance: POLYETHYLENE GLYCOLS
     Indication: Constipation
     Dosage: 1 DOSAGE FORM= 1 UNITS NOS, AS NEEDED
     Route: 048
     Dates: start: 20211208
  34. SORBITOL [Concomitant]
     Active Substance: SORBITOL
     Indication: Constipation
     Dosage: 1 DOSAGE FORM= 20 UNITS NOS, AS NEEDED
     Route: 048
     Dates: start: 20211208

REACTIONS (1)
  - Myocardial infarction [Fatal]

NARRATIVE: CASE EVENT DATE: 20211215
